FAERS Safety Report 5293844-8 (Version None)
Quarter: 2007Q2

REPORT INFORMATION
  Report Type: 
  Country: None (occurrence: None)
  Receive Date: 20070411
  Receipt Date: 20070328
  Transmission Date: 20071010
  Serious: Yes (Death, Other)
  Sender: FDA-Public Use
  Company Number: ES-MERCK-0704ESP00002

PATIENT
  Age: 63 Year
  Sex: Female

DRUGS (13)
  1. CANCIDAS [Suspect]
     Indication: ASPERGILLOSIS
     Route: 042
  2. CANCIDAS [Suspect]
     Route: 042
  3. CANCIDAS [Suspect]
     Indication: BRONCHOPULMONARY ASPERGILLOSIS
     Route: 042
  4. CANCIDAS [Suspect]
     Route: 042
  5. VORICONAZOLE [Concomitant]
     Indication: ASPERGILLOSIS
     Route: 065
  6. VORICONAZOLE [Concomitant]
     Indication: BRONCHOPULMONARY ASPERGILLOSIS
     Route: 065
  7. TACROLIMUS [Concomitant]
     Route: 065
  8. MYCOPHENOLATE MOFETIL [Concomitant]
     Route: 065
  9. PREDNISONE [Concomitant]
     Route: 065
  10. CORTICOSTEROIDS (UNSPECIFIED) [Concomitant]
     Indication: GRAFT THROMBOSIS
     Route: 065
  11. ANTIMICROBIAL (UNSPECIFIED) [Concomitant]
     Indication: SEPSIS
     Route: 065
  12. ANTIMICROBIAL (UNSPECIFIED) [Concomitant]
     Indication: PNEUMONIA
     Route: 065
  13. [THERAPY UNSPECIFIED] [Concomitant]
     Indication: GRAFT THROMBOSIS
     Route: 065

REACTIONS (4)
  - ASPARTATE AMINOTRANSFERASE INCREASED [None]
  - DEATH [None]
  - MULTI-ORGAN FAILURE [None]
  - SEPTIC SHOCK [None]
